FAERS Safety Report 12254143 (Version 3)
Quarter: 2016Q2

REPORT INFORMATION
  Report Type: Report from Study
  Country: US (occurrence: US)
  Receive Date: 20160411
  Receipt Date: 20160501
  Transmission Date: 20160815
  Serious: Yes (Other)
  Sender: FDA-Public Use
  Company Number: US-PURDUE-USA-2016-0130152

PATIENT
  Age: 66 Year
  Sex: Female

DRUGS (2)
  1. OXYCONTIN [Suspect]
     Active Substance: OXYCODONE HYDROCHLORIDE
     Indication: BACK PAIN
     Dosage: 60 MG, Q12H
     Route: 048
     Dates: start: 20151204
  2. OXYCONTIN [Suspect]
     Active Substance: OXYCODONE HYDROCHLORIDE
     Indication: PAIN
     Dosage: 60 MG, Q12H
     Route: 048
     Dates: start: 2014

REACTIONS (15)
  - Muscle spasms [Unknown]
  - Upper respiratory tract infection [Unknown]
  - Visual acuity reduced [Unknown]
  - Tendon injury [Unknown]
  - Cough [Unknown]
  - Toothache [Unknown]
  - Pain [Unknown]
  - Respiratory disorder [Unknown]
  - Pneumonia [Unknown]
  - Gait disturbance [Unknown]
  - Sinus disorder [Unknown]
  - Depression [Unknown]
  - Back injury [Unknown]
  - Cataract [Unknown]
  - Activities of daily living impaired [Unknown]

NARRATIVE: CASE EVENT DATE: 201512
